FAERS Safety Report 19885705 (Version 1)
Quarter: 2021Q3

REPORT INFORMATION
  Report Type: Spontaneous
  Country: CH (occurrence: MX)
  Receive Date: 20210927
  Receipt Date: 20210927
  Transmission Date: 20211014
  Serious: Yes (Death, Other)
  Sender: FDA-Public Use
  Company Number: MX-ASTELLAS-2021US035700

PATIENT
  Age: 80 Year
  Sex: Female

DRUGS (1)
  1. ISAVUCONAZOLE [Suspect]
     Active Substance: ISAVUCONAZOLE
     Indication: SYSTEMIC CANDIDA
     Dosage: UNK, UNKNOWN FREQ.
     Route: 042

REACTIONS (2)
  - Death [Fatal]
  - Off label use [Unknown]
